FAERS Safety Report 7099901-8 (Version None)
Quarter: 2010Q4

REPORT INFORMATION
  Report Type: 
  Country: None (occurrence: None)
  Receive Date: 20101112
  Receipt Date: 20101109
  Transmission Date: 20110411
  Serious: Yes (Hospitalization)
  Sender: FDA-Public Use
  Company Number: CN-BAYER-200818269GPV

PATIENT
  Age: 68 Year
  Sex: Male
  Weight: 82 kg

DRUGS (2)
  1. NEXAVAR [Suspect]
     Indication: RENAL CELL CARCINOMA
     Dosage: TOTAL DAILY DOSE: 800 MG  UNIT DOSE: 200 MG
     Route: 048
     Dates: start: 20080416, end: 20080423
  2. INF-A [Suspect]
     Indication: RENAL CELL CARCINOMA
     Dosage: 5 TIMES A WEEK, EVERY WEEK
     Route: 042
     Dates: start: 20080416, end: 20080423

REACTIONS (2)
  - CHEST DISCOMFORT [None]
  - PYREXIA [None]
